FAERS Safety Report 23336974 (Version 1)
Quarter: 2023Q4

REPORT INFORMATION
  Report Type: Spontaneous
  Country: CA (occurrence: CA)
  Receive Date: 20231226
  Receipt Date: 20231226
  Transmission Date: 20240110
  Serious: Yes (Hospitalization, Congenital Anomaly, Other)
  Sender: FDA-Public Use
  Company Number: CA-UCBSA-2023059302

PATIENT
  Age: 0 Year
  Sex: Female
  Weight: 2.97 kg

DRUGS (2)
  1. KEPPRA [Suspect]
     Active Substance: LEVETIRACETAM
     Indication: Generalised tonic-clonic seizure
     Dosage: 200 MILLIGRAM, 2X/DAY (BID)
     Route: 064
     Dates: start: 2007, end: 20140810
  2. KEPPRA [Suspect]
     Active Substance: LEVETIRACETAM
     Indication: Petit mal epilepsy
     Dosage: 200 MILLIGRAM, 2X/DAY (BID)
     Route: 063
     Dates: start: 201408, end: 201409

REACTIONS (7)
  - Pulmonary malformation [Unknown]
  - Developmental delay [Unknown]
  - Gastrooesophageal reflux disease [Recovered/Resolved]
  - Childhood asthma [Unknown]
  - Maternal exposure before pregnancy [Unknown]
  - Maternal exposure during pregnancy [Unknown]
  - Exposure via breast milk [Unknown]

NARRATIVE: CASE EVENT DATE: 20131101
